FAERS Safety Report 5950922-5 (Version None)
Quarter: 2008Q4

REPORT INFORMATION
  Report Type: 
  Country: None (occurrence: None)
  Receive Date: 20081112
  Receipt Date: 20081031
  Transmission Date: 20090506
  Serious: Yes (Other)
  Sender: FDA-Public Use
  Company Number: US-PFIZER INC-2008081565

PATIENT
  Sex: Female
  Weight: 129.3 kg

DRUGS (4)
  1. LYRICA [Suspect]
     Indication: SCIATICA
     Dates: start: 20080825, end: 20080907
  2. LYRICA [Suspect]
     Indication: CARPAL TUNNEL SYNDROME
  3. PRILOSEC [Concomitant]
  4. CLINORIL [Concomitant]

REACTIONS (2)
  - DEPRESSION [None]
  - MOOD SWINGS [None]
